FAERS Safety Report 14432244 (Version 1)
Quarter: 2018Q1

REPORT INFORMATION
  Report Type: Spontaneous
  Country: DE (occurrence: DE)
  Receive Date: 20180124
  Receipt Date: 20180124
  Transmission Date: 20180509
  Serious: Yes (Hospitalization)
  Sender: FDA-Public Use
  Company Number: DE-CONCORDIA PHARMACEUTICALS INC.-E2B_00009548

PATIENT
  Sex: Male

DRUGS (9)
  1. DOXORUBICINE [Suspect]
     Active Substance: DOXORUBICIN
     Indication: B-CELL LYMPHOMA
     Dosage: LAST CYCLE CHOP STARTED PRIOR SAE:13/DEC/2017
     Route: 042
     Dates: start: 20171027, end: 20171213
  2. PREDNISOLONE. [Suspect]
     Active Substance: PREDNISOLONE
     Indication: B-CELL LYMPHOMA
     Dosage: LAST CYCLE CHOP STARTED PRIOR SAE:13/DEC/2017
     Route: 065
     Dates: start: 20171026, end: 20171213
  3. VINCRISTINE [Suspect]
     Active Substance: VINCRISTINE
     Indication: B-CELL LYMPHOMA
     Dosage: LAST CYCLE CHOP STARTED PRIOR SAE:13/DEC/2017
     Route: 042
     Dates: start: 20171027, end: 20171213
  4. PEGFILGRASTIM [Suspect]
     Active Substance: PEGFILGRASTIM
     Indication: B-CELL LYMPHOMA
     Route: 058
     Dates: start: 20171029, end: 20171216
  5. CYCLOPHOSPHAMIDE. [Suspect]
     Active Substance: CYCLOPHOSPHAMIDE
     Indication: B-CELL LYMPHOMA
     Dosage: LAST CYCLE CHOP STARTED PRIOR SAE:13/DEC/2017
     Route: 042
     Dates: start: 20171027, end: 20171213
  6. GABAPENTIN. [Concomitant]
     Active Substance: GABAPENTIN
  7. RITUXIMAB. [Suspect]
     Active Substance: RITUXIMAB
     Route: 042
     Dates: start: 20171026
  8. RITUXIMAB. [Suspect]
     Active Substance: RITUXIMAB
     Indication: B-CELL LYMPHOMA
     Dosage: LAST RITUXIMAB GIVEN PRIOR TO SAE WAS 12/DEC/2017
     Route: 042
     Dates: start: 20171212
  9. NALOXONE HYDROCHLORIDE/TILIDINE HYDROCHLORIDE [Concomitant]

REACTIONS (3)
  - Oropharyngeal pain [Unknown]
  - Febrile neutropenia [Unknown]
  - Anaemia [Unknown]

NARRATIVE: CASE EVENT DATE: 20171221
